FAERS Safety Report 18978425 (Version 1)
Quarter: 2021Q1

REPORT INFORMATION
  Report Type: Report from Study
  Country: None (occurrence: US)
  Receive Date: 20210307
  Receipt Date: 20210307
  Transmission Date: 20210420
  Serious: Yes (Hospitalization, Other)
  Sender: FDA-Public Use
  Company Number: US-ABBVIE-21K-163-3768882-00

PATIENT
  Age: 66 Year
  Sex: Male
  Weight: 61.29 kg

DRUGS (1)
  1. VENCLEXTA [Suspect]
     Active Substance: VENETOCLAX
     Indication: CHRONIC LYMPHOCYTIC LEUKAEMIA
     Route: 048
     Dates: start: 202008, end: 202102

REACTIONS (3)
  - Hypotension [Unknown]
  - Infection [Unknown]
  - Hodgkin^s disease [Unknown]

NARRATIVE: CASE EVENT DATE: 202102
